FAERS Safety Report 4484923-3 (Version None)
Quarter: 2004Q3

REPORT INFORMATION
  Report Type: 
  Country: None (occurrence: None)
  Receive Date: 20040921
  Receipt Date: 20030812
  Transmission Date: 20050211
  Serious: Yes (Hospitalization)
  Sender: FDA-Public Use
  Company Number: 163-20785-03080477

PATIENT
  Age: 80 Year
  Sex: Female
  Weight: 50.8029 kg

DRUGS (13)
  1. THALOMID [Suspect]
     Indication: MULTIPLE MYELOMA
     Dosage: 200 MG, DAILY, HS, ORAL
     Route: 048
     Dates: start: 20030714, end: 20030725
  2. ECOTRIN (ACETYLSALCYCLIC ACID) [Concomitant]
  3. POTASSIUM (POTASSIUM) [Concomitant]
  4. VITAMIN E [Concomitant]
  5. MULTIVITAMIN (MULTIVITAMINS) [Concomitant]
  6. PROTONIX (PANTOPRAZOLE0 [Concomitant]
  7. LAXIS (FUROSEMIDE) [Concomitant]
  8. CARDIZEM [Concomitant]
  9. LANOXIN [Concomitant]
  10. PREDNISONE [Concomitant]
  11. CYTOXAN [Concomitant]
  12. SEPTRA [Concomitant]
  13. PREVACID [Concomitant]

REACTIONS (2)
  - DEEP VEIN THROMBOSIS [None]
  - PAIN IN EXTREMITY [None]
